FAERS Safety Report 23469709 (Version 1)
Quarter: 2024Q1

REPORT INFORMATION
  Report Type: Spontaneous
  Country: IT (occurrence: IT)
  Receive Date: 20240202
  Receipt Date: 20240202
  Transmission Date: 20240410
  Serious: Yes (Hospitalization, Other)
  Sender: FDA-Public Use
  Company Number: IT-ABBVIE-5608395

PATIENT
  Age: 52 Year
  Sex: Female
  Weight: 65 kg

DRUGS (1)
  1. VENETOCLAX [Suspect]
     Active Substance: VENETOCLAX
     Indication: Chronic lymphocytic leukaemia
     Route: 048
     Dates: start: 20221208, end: 20230516

REACTIONS (7)
  - Anaemia [Unknown]
  - Lymphadenopathy [Unknown]
  - Leukocytosis [Unknown]
  - Blood lactate dehydrogenase increased [Unknown]
  - Musculoskeletal disorder [Unknown]
  - Thrombocytopenia [Unknown]
  - Richter^s syndrome [Unknown]

NARRATIVE: CASE EVENT DATE: 20230501
